FAERS Safety Report 17815429 (Version 1)
Quarter: 2020Q2

REPORT INFORMATION
  Report Type: Spontaneous
  Country: US (occurrence: US)
  Receive Date: 20200522
  Receipt Date: 20200522
  Transmission Date: 20200714
  Serious: No
  Sender: FDA-Public Use
  Company Number: US-BAYER-2020-091601

PATIENT
  Sex: Female

DRUGS (2)
  1. MIRALAX [Suspect]
     Active Substance: POLYETHYLENE GLYCOL 3350
     Indication: GASTROINTESTINAL DISORDER
     Route: 048
     Dates: start: 20200518
  2. TRAMADOL. [Suspect]
     Active Substance: TRAMADOL

REACTIONS (5)
  - Dizziness [Unknown]
  - Product dispensing error [None]
  - Abdominal pain [None]
  - Constipation [Unknown]
  - Expired product administered [Unknown]

NARRATIVE: CASE EVENT DATE: 20200518
